FAERS Safety Report 5118437-4 (Version None)
Quarter: 2006Q3

REPORT INFORMATION
  Report Type: 
  Country: None (occurrence: None)
  Receive Date: 20060926
  Receipt Date: 20060918
  Transmission Date: 20061208
  Serious: Yes (Death, Other)
  Sender: FDA-Public Use
  Company Number: US200603002411

PATIENT
  Age: 28 Year
  Sex: Male
  Weight: 101.6 kg

DRUGS (1)
  1. ZYPREXA [Suspect]

REACTIONS (2)
  - DIABETIC KETOACIDOSIS [None]
  - VISION BLURRED [None]
